FAERS Safety Report 16361863 (Version 3)
Quarter: 2019Q4

REPORT INFORMATION
  Report Type: Spontaneous
  Country: US (occurrence: US)
  Receive Date: 20190528
  Receipt Date: 20191016
  Transmission Date: 20200122
  Serious: Yes (Other)
  Sender: FDA-Public Use
  Company Number: US-PFIZER INC-2019222710

PATIENT
  Age: 68 Year
  Sex: Male
  Weight: 68.27 kg

DRUGS (1)
  1. CHANTIX [Suspect]
     Active Substance: VARENICLINE TARTRATE
     Indication: SMOKING CESSATION THERAPY
     Dosage: UNK
     Dates: start: 2018, end: 201904

REACTIONS (4)
  - Lung neoplasm malignant [Unknown]
  - Pulmonary mass [Unknown]
  - Cough [Unknown]
  - Malaise [Unknown]
